FAERS Safety Report 8283194-X (Version None)
Quarter: 2012Q2

REPORT INFORMATION
  Report Type: 
  Country: None (occurrence: None)
  Receive Date: 20120413
  Receipt Date: 20120409
  Transmission Date: 20120825
  Serious: Yes (Hospitalization)
  Sender: FDA-Public Use
  Company Number: DE-MERCK-1204DEU00029

PATIENT
  Age: 70 Year
  Sex: Female

DRUGS (6)
  1. AMIODARONE HCL [Suspect]
     Indication: AORTIC VALVE REPLACEMENT
     Route: 065
  2. BISOPROLOL [Suspect]
     Route: 065
  3. TORSEMIDE [Suspect]
     Indication: AORTIC VALVE REPLACEMENT
     Route: 065
  4. PHENPROCOUMON [Suspect]
     Indication: AORTIC VALVE REPLACEMENT
     Route: 065
  5. COZAAR [Suspect]
     Indication: AORTIC VALVE REPLACEMENT
     Route: 048
  6. ASPIRIN [Concomitant]
     Route: 065

REACTIONS (1)
  - CUTANEOUS LUPUS ERYTHEMATOSUS [None]
